FAERS Safety Report 13836680 (Version 1)
Quarter: 2017Q3

REPORT INFORMATION
  Report Type: Spontaneous
  Country: US (occurrence: US)
  Receive Date: 20170804
  Receipt Date: 20170804
  Transmission Date: 20171127
  Serious: No
  Sender: FDA-Public Use
  Company Number: US-ROCHE-1122361

PATIENT
  Sex: Female

DRUGS (2)
  1. BONIVA [Suspect]
     Active Substance: IBANDRONATE SODIUM
     Indication: BREAST CANCER METASTATIC
     Route: 048
     Dates: start: 2006
  2. BONIVA [Suspect]
     Active Substance: IBANDRONATE SODIUM
     Indication: PAIN

REACTIONS (1)
  - Tooth disorder [Not Recovered/Not Resolved]
